FAERS Safety Report 4657222-4 (Version None)
Quarter: 2005Q2

REPORT INFORMATION
  Report Type: 
  Country: None (occurrence: None)
  Receive Date: 20050506
  Receipt Date: 20050425
  Transmission Date: 20051028
  Serious: Yes (Hospitalization, Other)
  Sender: FDA-Public Use
  Company Number: 2005018065

PATIENT
  Age: 78 Year
  Sex: Female
  Weight: 90.7194 kg

DRUGS (6)
  1. CELEBREX [Suspect]
     Indication: ILL-DEFINED DISORDER
  2. BEXTRA [Suspect]
     Indication: ARTHRITIS
     Dosage: (1 IN 1 D)
     Dates: start: 20040101, end: 20040101
  3. BEXTRA [Suspect]
     Indication: ILL-DEFINED DISORDER
     Dosage: (1 IN 1 D)
     Dates: start: 20040101, end: 20040101
  4. VICODIN [Concomitant]
  5. PROPACET 100 [Concomitant]
  6. ROFECOXIB [Concomitant]

REACTIONS (13)
  - ALBUMIN URINE PRESENT [None]
  - CHILLS [None]
  - CHROMATURIA [None]
  - CYSTITIS [None]
  - DRUG HYPERSENSITIVITY [None]
  - DYSURIA [None]
  - HYPERTENSION [None]
  - INFECTION [None]
  - LOSS OF CONSCIOUSNESS [None]
  - MALAISE [None]
  - POISONING [None]
  - PRECANCEROUS SKIN LESION [None]
  - RENAL FAILURE ACUTE [None]
